FAERS Safety Report 18847649 (Version 1)
Quarter: 2021Q1

REPORT INFORMATION
  Report Type: Spontaneous
  Country: US (occurrence: US)
  Receive Date: 20210204
  Receipt Date: 20210204
  Transmission Date: 20210419
  Serious: Yes (Other)
  Sender: FDA-Public Use
  Company Number: US-NOVOPROD-783941

PATIENT
  Sex: Female

DRUGS (1)
  1. VICTOZA [Suspect]
     Active Substance: LIRAGLUTIDE
     Indication: PRODUCT USED FOR UNKNOWN INDICATION
     Dosage: UNK
     Route: 065

REACTIONS (7)
  - Depression [Unknown]
  - Blood glucose increased [Unknown]
  - Cataract [Not Recovered/Not Resolved]
  - Fall [Not Recovered/Not Resolved]
  - Hypoacusis [Unknown]
  - Anxiety [Unknown]
  - Vertigo [Unknown]
